FAERS Safety Report 11394849 (Version 1)
Quarter: 2015Q3

REPORT INFORMATION
  Report Type: Spontaneous
  Country: US (occurrence: None)
  Receive Date: 20150817
  Receipt Date: 20150817
  Transmission Date: 20151125
  Serious: Yes (Life-Threatening, Hospitalization)
  Sender: FDA-Public Use
  Company Number: None

PATIENT
  Age: 42 Year
  Sex: Female
  Weight: 90.72 kg

DRUGS (6)
  1. QUASENSE [Suspect]
     Active Substance: ETHINYL ESTRADIOL\LEVONORGESTREL
     Indication: CONTRACEPTION
     Route: 048
     Dates: start: 20110128, end: 20110422
  2. POTASSIUM GLUCONATE [Concomitant]
     Active Substance: POTASSIUM GLUCONATE
  3. WARFARIN [Concomitant]
     Active Substance: WARFARIN
  4. TRIAZOLAM. [Concomitant]
     Active Substance: TRIAZOLAM
  5. FOLIC ACID. [Concomitant]
     Active Substance: FOLIC ACID
  6. L-THYROXINE (SYNTHROID) [Concomitant]

REACTIONS (6)
  - Muscle spasms [None]
  - Pain in extremity [None]
  - Thrombosis [None]
  - Middle insomnia [None]
  - Peripheral swelling [None]
  - Impaired work ability [None]

NARRATIVE: CASE EVENT DATE: 20110422
